FAERS Safety Report 15907921 (Version 1)
Quarter: 2019Q1

REPORT INFORMATION
  Report Type: Report from Study
  Country: CA (occurrence: CA)
  Receive Date: 20190204
  Receipt Date: 20190204
  Transmission Date: 20190417
  Serious: Yes (Hospitalization, Other)
  Sender: FDA-Public Use
  Company Number: CA-GILEAD-2019-0386013

PATIENT
  Age: 74 Year
  Sex: Male

DRUGS (1)
  1. SOFOSBUVIR W/VELPATASVIR [Suspect]
     Active Substance: SOFOSBUVIR\VELPATASVIR
     Indication: CHRONIC HEPATITIS C
     Dosage: 1 DF
     Route: 048
     Dates: start: 20180330, end: 201806

REACTIONS (4)
  - Renal disorder [Unknown]
  - Treatment failure [Unknown]
  - Hepatic fibrosis [Not Recovered/Not Resolved]
  - Cerebrovascular accident [Unknown]
